FAERS Safety Report 9033292 (Version 2)
Quarter: 2013Q1

REPORT INFORMATION
  Report Type: Spontaneous
  Country: US (occurrence: US)
  Receive Date: 20130128
  Receipt Date: 20130130
  Transmission Date: 20140127
  Serious: No
  Sender: FDA-Public Use
  Company Number: US-009507513-1210USA014663

PATIENT
  Sex: Male

DRUGS (1)
  1. COPPERTONE SPORT DRY LOTION SPF-30 [Suspect]
     Indication: PRODUCT USED FOR UNKNOWN INDICATION
     Route: 061

REACTIONS (2)
  - Skin burning sensation [Unknown]
  - Erythema [Unknown]
